FAERS Safety Report 5226481-1 (Version None)
Quarter: 2007Q1

REPORT INFORMATION
  Report Type: 
  Country: None (occurrence: None)
  Receive Date: 20070201
  Receipt Date: 20070125
  Transmission Date: 20070707
  Serious: Yes (Other)
  Sender: FDA-Public Use
  Company Number: 2007AP00685

PATIENT
  Age: 69 Year
  Sex: Female

DRUGS (1)
  1. IRESSA [Suspect]
     Indication: LUNG ADENOCARCINOMA
     Route: 048
     Dates: start: 20061102, end: 20061220

REACTIONS (4)
  - CYSTITIS HAEMORRHAGIC [None]
  - DIARRHOEA [None]
  - LIVER DISORDER [None]
  - SKIN DISORDER [None]
